FAERS Safety Report 25349409 (Version 1)
Quarter: 2025Q2

REPORT INFORMATION
  Report Type: Spontaneous
  Country: US (occurrence: US)
  Receive Date: 20250522
  Receipt Date: 20250522
  Transmission Date: 20250716
  Serious: No
  Sender: BRACCO
  Company Number: US-BRACCO-2025US00072

PATIENT
  Sex: Male

DRUGS (1)
  1. READI-CAT [Suspect]
     Active Substance: BARIUM SULFATE
     Indication: Computerised tomogram pelvis
     Route: 048
     Dates: start: 20250106, end: 20250106

REACTIONS (5)
  - Abdominal pain [Recovering/Resolving]
  - Nausea [Recovering/Resolving]
  - Diarrhoea [Recovering/Resolving]
  - Arthralgia [Recovering/Resolving]
  - Tongue blistering [Recovering/Resolving]

NARRATIVE: CASE EVENT DATE: 20250106
